FAERS Safety Report 13656142 (Version 12)
Quarter: 2019Q2

REPORT INFORMATION
  Report Type: Report from Study
  Country: AR (occurrence: AR)
  Receive Date: 20170615
  Receipt Date: 20190407
  Transmission Date: 20190711
  Serious: Yes (Death, Hospitalization)
  Sender: FDA-Public Use
  Company Number: AR-ROCHE-1931567

PATIENT
  Age: 73 Year
  Sex: Female

DRUGS (29)
  1. PACLITAXEL. [Suspect]
     Active Substance: PACLITAXEL
     Indication: NON-SMALL CELL LUNG CANCER STAGE IV
     Dosage: DOSE OF LAST PACLITAXEL ADMINISTERED, 260 MG?DATE OF MOST RECENT DOSE OF PACLITAXEL, 06/APR/2017
     Route: 042
     Dates: start: 20161213
  2. RANITIDINE. [Concomitant]
     Active Substance: RANITIDINE
     Route: 065
     Dates: start: 20170427, end: 20170429
  3. RANITIDINE. [Concomitant]
     Active Substance: RANITIDINE
     Route: 065
     Dates: start: 20170604, end: 20170610
  4. SILDENAFIL. [Concomitant]
     Active Substance: SILDENAFIL
     Indication: PULMONARY HYPERTENSION
     Route: 065
     Dates: start: 20170516, end: 20170526
  5. HYDRALAZINE [Concomitant]
     Active Substance: HYDRALAZINE HYDROCHLORIDE
     Indication: HYPERTENSION
     Route: 065
     Dates: start: 20170516, end: 20170516
  6. RED BLOOD CELLS [Concomitant]
     Active Substance: HUMAN RED BLOOD CELL
     Indication: ANAEMIA
     Dosage: 2 UNIT
     Route: 065
     Dates: start: 20170504, end: 20170505
  7. ATORVASTATINA [Concomitant]
     Active Substance: ATORVASTATIN
     Indication: DYSLIPIDAEMIA
  8. RANITIDINE. [Concomitant]
     Active Substance: RANITIDINE
     Indication: PROPHYLAXIS
     Route: 065
     Dates: start: 20170406, end: 20170406
  9. LORAZEPAM. [Concomitant]
     Active Substance: LORAZEPAM
     Indication: SEDATION
     Route: 065
     Dates: start: 20170505, end: 20170529
  10. PIPERACILLIN/TAZOBACTAM [Concomitant]
     Active Substance: PIPERACILLIN SODIUM\TAZOBACTAM SODIUM
     Indication: RESPIRATORY TRACT INFECTION
     Route: 065
     Dates: start: 20170505, end: 20170520
  11. ATEZOLIZUMAB. [Suspect]
     Active Substance: ATEZOLIZUMAB
     Indication: NON-SMALL CELL LUNG CANCER STAGE IV
     Dosage: FORM AND FIXED DOSE PER PROTOCOL. DOSE OF LAST ATEZOLIZUMAB ADMINISTERED, 1200 MG. DATE OF MOST RECE
     Route: 042
     Dates: start: 20161213
  12. BEVACIZUMAB. [Suspect]
     Active Substance: BEVACIZUMAB
     Indication: NON-SMALL CELL LUNG CANCER STAGE IV
     Dosage: DOSE OF LAST BEVACIZUMAB ADMINISTERED, 585 MG?DATE OF MOST RECENT DOSE OF BEVACIZUMAB, 06/APR/2017
     Route: 042
     Dates: start: 20161213
  13. CARBOPLATIN. [Suspect]
     Active Substance: CARBOPLATIN
     Indication: NON-SMALL CELL LUNG CANCER STAGE IV
     Dosage: DOSE OF LAST CARBOPLATIN ADMINISTERED, 486 MG?DATE OF MOST RECENT DOSE OF CARBOPLATIN, 06/APR/2017?T
     Route: 042
     Dates: start: 20161213
  14. TRAMADOL. [Concomitant]
     Active Substance: TRAMADOL
     Indication: COCCYDYNIA
  15. PREGABALIN. [Concomitant]
     Active Substance: PREGABALIN
     Indication: NEURALGIA
     Route: 065
     Dates: start: 20170506, end: 20170603
  16. OMEPRAZOLE. [Concomitant]
     Active Substance: OMEPRAZOLE
     Indication: GASTROINTESTINAL DISORDER PROPHYLAXIS
     Route: 065
     Dates: start: 20170512, end: 20170603
  17. ONDANSETRON [Concomitant]
     Active Substance: ONDANSETRON
     Indication: PROPHYLAXIS
     Route: 065
     Dates: start: 20170406, end: 20170406
  18. FILGRASTIM [Concomitant]
     Active Substance: FILGRASTIM
     Dosage: INDICATION: COLONY STIMULANT
     Route: 065
     Dates: start: 20170427, end: 20170429
  19. RANITIDINE. [Concomitant]
     Active Substance: RANITIDINE
     Dosage: GASTRIC PROTECTOR
     Route: 065
     Dates: start: 20170505, end: 20170510
  20. RANITIDINE. [Concomitant]
     Active Substance: RANITIDINE
     Dosage: GASTRIC PROTECTOR
     Route: 065
     Dates: start: 20170604, end: 20170610
  21. VITAMIN D3 [Concomitant]
     Active Substance: CHOLECALCIFEROL
     Indication: HYPOCALCAEMIA
     Route: 065
     Dates: start: 20161207
  22. PIPERACILLIN/TAZOBACTAM [Concomitant]
     Active Substance: PIPERACILLIN SODIUM\TAZOBACTAM SODIUM
     Route: 065
     Dates: start: 20170605, end: 20170609
  23. VANCOMYCIN [Concomitant]
     Active Substance: VANCOMYCIN
     Indication: RESPIRATORY TRACT INFECTION
     Route: 065
     Dates: start: 20170515, end: 20170526
  24. NEBIVOLOL. [Concomitant]
     Active Substance: NEBIVOLOL
     Indication: HYPERTENSION
     Route: 065
     Dates: start: 20170530, end: 20170601
  25. CARVEDILOL. [Concomitant]
     Active Substance: CARVEDILOL
     Indication: HYPERTENSION
  26. DIAZEPINA [Concomitant]
     Indication: INSOMNIA
  27. RANITIDINE. [Concomitant]
     Active Substance: RANITIDINE
     Route: 065
     Dates: start: 20170505, end: 20170510
  28. BENADRYL (ARGENTINA) [Concomitant]
     Indication: PROPHYLAXIS
     Route: 065
     Dates: start: 20170406, end: 20170406
  29. NITROGLYCERINE [Concomitant]
     Active Substance: NITROGLYCERIN
     Indication: HYPERTENSION
     Route: 065
     Dates: start: 20170530, end: 20170601

REACTIONS (1)
  - Cardiac failure [Fatal]

NARRATIVE: CASE EVENT DATE: 20170504
